FAERS Safety Report 23788689 (Version 1)
Quarter: 2024Q2

REPORT INFORMATION
  Report Type: Report from Study
  Country: US (occurrence: US)
  Receive Date: 20240426
  Receipt Date: 20240426
  Transmission Date: 20240716
  Serious: Yes (Other)
  Sender: FDA-Public Use
  Company Number: US-INTRA-CELLULAR THERAPIES, INC.-2024ICT00513

PATIENT
  Age: 45 Year
  Sex: Female
  Weight: 104.76 kg

DRUGS (4)
  1. CAPLYTA [Suspect]
     Active Substance: LUMATEPERONE
     Indication: Bipolar disorder
     Dosage: 42 MG, 1X/DAY
     Route: 048
     Dates: start: 20231218, end: 20231221
  2. GLIPIZIDE [Concomitant]
     Active Substance: GLIPIZIDE
  3. JARDIANCE [Concomitant]
     Active Substance: EMPAGLIFLOZIN
  4. LISINOPRIL [Concomitant]
     Active Substance: LISINOPRIL

REACTIONS (4)
  - Hallucinations, mixed [Unknown]
  - Drug abuse [Unknown]
  - Nightmare [Unknown]
  - Paranoia [Unknown]

NARRATIVE: CASE EVENT DATE: 20231201
